FAERS Safety Report 8916040 (Version 1)
Quarter: 2012Q4

REPORT INFORMATION
  Report Type: 
  Country: IT (occurrence: IT)
  Receive Date: 20121119
  Receipt Date: 20121119
  Transmission Date: 20130627
  Serious: Yes (Other)
  Sender: FDA-Public Use
  Company Number: IT-JNJFOC-20121106397

PATIENT
  Age: 50 Year
  Sex: Male

DRUGS (3)
  1. REMICADE [Suspect]
     Indication: CROHN^S DISEASE
     Dosage: dose: 5mg/kg
     Route: 042
     Dates: start: 20111220
  2. REMICADE [Suspect]
     Indication: CROHN^S DISEASE
     Dosage: dose: 5 mg/kg
     Route: 042
     Dates: start: 20121108, end: 20121108
  3. HYDROCORTISONE [Concomitant]
     Indication: PREMEDICATION
     Route: 042
     Dates: start: 20121108

REACTIONS (3)
  - Pruritus generalised [Recovered/Resolved]
  - Oral discomfort [Recovered/Resolved]
  - Infusion related reaction [Recovered/Resolved]
